FAERS Safety Report 16980513 (Version 2)
Quarter: 2019Q4

REPORT INFORMATION
  Report Type: Spontaneous
  Country: ES (occurrence: ES)
  Receive Date: 20191031
  Receipt Date: 20191108
  Transmission Date: 20200122
  Serious: Yes (Other)
  Sender: FDA-Public Use
  Company Number: ES-009507513-1910ESP013310

PATIENT
  Age: 34 Year
  Sex: Female
  Weight: 44 kg

DRUGS (3)
  1. NUVARING [Suspect]
     Active Substance: ETHINYL ESTRADIOL\ETONOGESTREL
     Indication: AMENORRHOEA
     Dosage: INSERTION OF THE RING DURING 3 WEEKS
     Route: 067
     Dates: start: 20190826, end: 20190914
  2. NUVARING APLICADOR [Suspect]
     Active Substance: ETHINYL ESTRADIOL\ETONOGESTREL
  3. LANSOPRAZOLE. [Concomitant]
     Active Substance: LANSOPRAZOLE
     Dosage: ONE PER DAY

REACTIONS (1)
  - Asthma [Recovered/Resolved]

NARRATIVE: CASE EVENT DATE: 20190830
